FAERS Safety Report 14901165 (Version 2)
Quarter: 2018Q2

REPORT INFORMATION
  Report Type: Spontaneous
  Country: GR (occurrence: GR)
  Receive Date: 20180516
  Receipt Date: 20180620
  Transmission Date: 20180711
  Serious: Yes (Death, Hospitalization, Other)
  Sender: FDA-Public Use
  Company Number: GR-SA-2018SA136748

PATIENT
  Age: 47 Year
  Sex: Female

DRUGS (2)
  1. ALEMTUZUMAB [Suspect]
     Active Substance: ALEMTUZUMAB
     Indication: RELAPSING-REMITTING MULTIPLE SCLEROSIS
     Dosage: 12 MG,QD
     Route: 041
  2. METHYLPREDNISOLONE. [Suspect]
     Active Substance: METHYLPREDNISOLONE
     Indication: MULTIPLE SCLEROSIS RELAPSE
     Dosage: UNK UNK,UNK
     Route: 065

REACTIONS (8)
  - Acute respiratory distress syndrome [Fatal]
  - Pyrexia [Fatal]
  - Neutrophil count decreased [Fatal]
  - Staphylococcal sepsis [Fatal]
  - Septic shock [Fatal]
  - Neutropenia [Fatal]
  - Drug ineffective [Unknown]
  - Confusional state [Fatal]
